FAERS Safety Report 8570542-6 (Version None)
Quarter: 2012Q3

REPORT INFORMATION
  Report Type: 
  Country: None (occurrence: None)
  Receive Date: 20120803
  Receipt Date: 20120726
  Transmission Date: 20120928
  Serious: No
  Sender: FDA-Public Use
  Company Number: US-ASTRAZENECA-2012SE53388

PATIENT
  Age: 46 Year
  Sex: Female

DRUGS (2)
  1. CRESTOR [Suspect]
     Route: 048
  2. PAIN PILL [Concomitant]

REACTIONS (3)
  - NERVOUS SYSTEM DISORDER [None]
  - LIMB INJURY [None]
  - PAIN IN EXTREMITY [None]
